FAERS Safety Report 6284595-1 (Version None)
Quarter: 2009Q3

REPORT INFORMATION
  Report Type: 
  Country: None (occurrence: None)
  Receive Date: 20090727
  Receipt Date: 20090624
  Transmission Date: 20100115
  Serious: No
  Sender: FDA-Public Use
  Company Number: US-ALEXION-A200900524

PATIENT
  Sex: Female

DRUGS (7)
  1. SOLIRIS [Suspect]
     Indication: PAROXYSMAL NOCTURNAL HAEMOGLOBINURIA
     Dosage: 600 MG, QW X4
     Route: 042
     Dates: start: 20090601
  2. SPIRONOLACTONE [Concomitant]
     Dosage: UNK
     Route: 048
  3. PREDNISONE [Concomitant]
  4. FOLIC ACID [Concomitant]
  5. POTASSIUM CHLORIDE [Concomitant]
  6. IRON [Concomitant]
  7. ATENOLOL [Concomitant]

REACTIONS (3)
  - ASTHENIA [None]
  - NAUSEA [None]
  - STRESS [None]
